FAERS Safety Report 21616877 (Version 1)
Quarter: 2022Q4

REPORT INFORMATION
  Report Type: Spontaneous
  Country: US (occurrence: US)
  Receive Date: 20221118
  Receipt Date: 20221118
  Transmission Date: 20230113
  Serious: No
  Sender: FDA-Public Use
  Company Number: US-009507513-2210USA010345

PATIENT
  Sex: Female
  Weight: 59 kg

DRUGS (1)
  1. PRINIVIL [Suspect]
     Active Substance: LISINOPRIL
     Dosage: 20 MILLIGRAM (MG), TWICE DAILY (BID)
     Route: 048

REACTIONS (1)
  - Inappropriate schedule of product administration [Unknown]
